FAERS Safety Report 6760162-8 (Version None)
Quarter: 2010Q2

REPORT INFORMATION
  Report Type: 
  Country: None (occurrence: None)
  Receive Date: 20100608
  Receipt Date: 20100601
  Transmission Date: 20101027
  Serious: Yes (Other)
  Sender: FDA-Public Use
  Company Number: TR-B.I. PHARMACEUTICALS,INC./RIDGEFIELD-2010-DE-03006GD

PATIENT
  Age: 43 Year
  Sex: Male

DRUGS (1)
  1. PRAMIPEXOLE DIHYDROCHLORIDE [Suspect]
     Indication: PARKINSON'S DISEASE
     Dosage: 1.75 MG

REACTIONS (4)
  - COMPULSIVE SHOPPING [None]
  - INTENTIONAL DRUG MISUSE [None]
  - LIBIDO INCREASED [None]
  - WEIGHT INCREASED [None]
